FAERS Safety Report 12274643 (Version 1)
Quarter: 2016Q2

REPORT INFORMATION
  Report Type: Spontaneous
  Country: US (occurrence: US)
  Receive Date: 20160415
  Receipt Date: 20160415
  Transmission Date: 20160815
  Serious: No
  Sender: FDA-Public Use
  Company Number: US-ALLERGAN-1507248US

PATIENT
  Age: 58 Year
  Sex: Female
  Weight: 57.14 kg

DRUGS (1)
  1. LATISSE [Suspect]
     Active Substance: BIMATOPROST
     Indication: GROWTH OF EYELASHES
     Dosage: UNK
     Route: 061

REACTIONS (5)
  - Eye irritation [Not Recovered/Not Resolved]
  - Eyelid irritation [Recovered/Resolved]
  - Drug administered at inappropriate site [Unknown]
  - Burning sensation [Recovered/Resolved]
  - Ocular hyperaemia [Not Recovered/Not Resolved]

NARRATIVE: CASE EVENT DATE: 20150419
